FAERS Safety Report 4703730-7 (Version None)
Quarter: 2005Q2

REPORT INFORMATION
  Report Type: 
  Country: None (occurrence: None)
  Receive Date: 20050208
  Receipt Date: 20050208
  Transmission Date: 20051028
  Serious: Yes (Hospitalization)
  Sender: FDA-Public Use
  Company Number: None

PATIENT
  Sex: Female
  Weight: 158.759 kg

DRUGS (1)
  1. FUROSEMIDE [Suspect]
     Indication: GENERALISED OEDEMA
     Dosage: 40MG / PO   3 YRS AGO APPROX.
     Route: 048

REACTIONS (3)
  - DRUG EFFECT DECREASED [None]
  - FLUID RETENTION [None]
  - THERAPEUTIC RESPONSE UNEXPECTED WITH DRUG SUBSTITUTION [None]
